APPROVED DRUG PRODUCT: CHROMIC CHLORIDE
Active Ingredient: CHROMIC CHLORIDE
Strength: EQ 0.004MG CHROMIUM/ML
Dosage Form/Route: INJECTABLE;INJECTION
Application: A218538 | Product #001 | TE Code: AP
Applicant: RK PHARMA INC
Approved: Nov 18, 2024 | RLD: No | RS: No | Type: RX